FAERS Safety Report 14778141 (Version 1)
Quarter: 2018Q2

REPORT INFORMATION
  Report Type: Spontaneous
  Country: US (occurrence: US)
  Receive Date: 20180419
  Receipt Date: 20180419
  Transmission Date: 20180711
  Serious: Yes (Other)
  Sender: FDA-Public Use
  Company Number: PHEH2018US014837

PATIENT
  Sex: Male

DRUGS (1)
  1. AFINITOR [Suspect]
     Active Substance: EVEROLIMUS
     Indication: NEUROENDOCRINE TUMOUR
     Dosage: 10 MG, QD
     Route: 048

REACTIONS (5)
  - Malignant neoplasm progression [Unknown]
  - Neuroendocrine tumour [Unknown]
  - Metastases to liver [Unknown]
  - Dizziness [Unknown]
  - Headache [Unknown]
